FAERS Safety Report 9669899 (Version 2)
Quarter: 2013Q4

REPORT INFORMATION
  Report Type: Report from Study
  Country: KR (occurrence: KR)
  Receive Date: 20131105
  Receipt Date: 20131105
  Transmission Date: 20140711
  Serious: No
  Sender: FDA-Public Use
  Company Number: PHHY2012KR113604

PATIENT
  Age: 56 Year
  Sex: Female

DRUGS (27)
  1. AMN107 [Suspect]
     Indication: CHRONIC MYELOID LEUKAEMIA
     Dosage: 800 MG, QD
     Route: 048
     Dates: start: 20120725, end: 20120830
  2. AMN107 [Suspect]
     Dosage: 400 MG, QD
     Route: 048
     Dates: start: 20121011
  3. PHENIRAMINE [Concomitant]
     Indication: URTICARIA
     Dosage: 6 MG, QD
     Route: 048
     Dates: start: 20120710, end: 20121001
  4. TALION [Concomitant]
     Indication: PROPHYLAXIS
     Dosage: 20 MG, QD
     Route: 048
     Dates: start: 20120816, end: 20120905
  5. TALION [Concomitant]
     Indication: DRUG ERUPTION
  6. ALBIS [Concomitant]
     Indication: GASTRIC ULCER
     Dosage: 2 DF, QD
     Route: 048
     Dates: start: 20120816, end: 20120917
  7. ALBIS [Concomitant]
     Dosage: UNK
  8. XYZAL [Concomitant]
     Indication: PROPHYLAXIS
     Dosage: 5 MG, QD
     Route: 048
     Dates: start: 20120816, end: 20120830
  9. GRASIN [Concomitant]
     Indication: NEUTROPENIA
     Dosage: 300 UG, QD
     Route: 058
     Dates: start: 20120830, end: 20120830
  10. GRASIN [Concomitant]
     Dosage: 300 UG, QD
     Route: 058
     Dates: start: 20120906, end: 20120906
  11. GRASIN [Concomitant]
     Dosage: 300 UG, QD
     Route: 058
     Dates: start: 20120913, end: 20120913
  12. GRASIN [Concomitant]
     Dosage: 300 UG, QD
     Route: 058
     Dates: start: 20120918, end: 20120918
  13. GRASIN [Concomitant]
     Dosage: 300 UG, QD
     Route: 058
     Dates: start: 20120925, end: 20120925
  14. CRAVIT [Concomitant]
     Indication: PYREXIA
     Dosage: 500 MG, QD
     Route: 048
     Dates: start: 20120830, end: 20121002
  15. CRAVIT [Concomitant]
     Indication: CELLULITIS ORBITAL
     Dosage: 0.5 %, QD
     Route: 047
     Dates: start: 20120903
  16. TARIVID OPHTHALMIC [Concomitant]
     Indication: CELLULITIS ORBITAL
     Dosage: 3.5 G, QD
     Route: 047
     Dates: start: 20120903
  17. SOLETON [Concomitant]
     Indication: CELLULITIS ORBITAL
     Dosage: 160 MG, QD
     Route: 048
     Dates: start: 20120903, end: 20120908
  18. SOLETON [Concomitant]
     Dosage: 160 MG, QD
     Route: 048
     Dates: start: 20120913, end: 20120920
  19. VARIDASE [Concomitant]
     Indication: CELLULITIS ORBITAL
     Dosage: 3 DF, QD
     Route: 048
     Dates: start: 20120903, end: 20120908
  20. VARIDASE [Concomitant]
     Dosage: 3 DF, QD
     Route: 048
     Dates: start: 20120913, end: 20120920
  21. MESAXIN [Concomitant]
     Indication: CELLULITIS ORBITAL
     Dosage: 1000 MG, QD
     Dates: start: 20120903, end: 20120908
  22. MESAXIN [Concomitant]
     Dosage: 1000 MG, UNK
     Route: 048
     Dates: start: 20120913, end: 20120920
  23. COLCHICIN [Concomitant]
     Indication: GOUT
     Dosage: 0.6 MG, QD
     Route: 048
     Dates: start: 20120920, end: 20120927
  24. TALIMEPIN [Concomitant]
     Indication: CELLULITIS ORBITAL
     Dosage: 1110 MG, QD
     Route: 048
     Dates: start: 20120920, end: 20120927
  25. CLEASE [Concomitant]
     Indication: CELLULITIS ORBITAL
     Dosage: 3 DF, QD
     Route: 048
     Dates: start: 20120920, end: 20120927
  26. RABICRA [Concomitant]
     Indication: GASTRIC ULCER
     Dosage: 3 DF, QD (84/100/300 MG)
     Route: 048
     Dates: start: 20120920, end: 20120927
  27. DEXAGEL [Concomitant]
     Indication: CELLULITIS ORBITAL
     Dosage: 1 DF, QD
     Route: 047
     Dates: start: 20120927, end: 20120927

REACTIONS (2)
  - Plantar fasciitis [Recovered/Resolved]
  - Erythema [Recovered/Resolved]
